FAERS Safety Report 6660774-6 (Version None)
Quarter: 2010Q1

REPORT INFORMATION
  Report Type: 
  Country: None (occurrence: None)
  Receive Date: 20100326
  Receipt Date: 20100316
  Transmission Date: 20100710
  Serious: Yes (Other)
  Sender: FDA-Public Use
  Company Number: 1000010422

PATIENT
  Sex: Female

DRUGS (3)
  1. ESCITALOPRAM [Suspect]
     Indication: POST-TRAUMATIC STRESS DISORDER
     Dosage: (10 MG),ORAL
     Route: 048
  2. ESCITALOPRAM [Suspect]
     Indication: POST-TRAUMATIC STRESS DISORDER
     Dosage: (5 MG),ORAL
     Route: 048
     Dates: end: 20100101
  3. ESCITALOPRAM [Suspect]
     Indication: POST-TRAUMATIC STRESS DISORDER
     Dosage: ORAL
     Route: 048

REACTIONS (15)
  - AGGRESSION [None]
  - ANXIETY [None]
  - DECREASED APPETITE [None]
  - DIZZINESS [None]
  - DYSARTHRIA [None]
  - FEELING ABNORMAL [None]
  - MALAISE [None]
  - MULTIPLE ALLERGIES [None]
  - NAUSEA [None]
  - PARAESTHESIA [None]
  - PRESYNCOPE [None]
  - SUICIDAL IDEATION [None]
  - SWELLING FACE [None]
  - SWOLLEN TONGUE [None]
  - WITHDRAWAL SYNDROME [None]
